FAERS Safety Report 5068223-9 (Version None)
Quarter: 2006Q3

REPORT INFORMATION
  Report Type: 
  Country: None (occurrence: None)
  Receive Date: 20060802
  Receipt Date: 20050609
  Transmission Date: 20061208
  Serious: No
  Sender: FDA-Public Use
  Company Number: US-BRISTOL-MYERS SQUIBB COMPANY-12998506

PATIENT
  Age: 64 Year
  Sex: Female
  Weight: 101 kg

DRUGS (12)
  1. COUMADIN [Suspect]
     Indication: AORTIC VALVE REPLACEMENT
     Dates: end: 20050601
  2. SENSIPAR [Concomitant]
  3. PHOSLO [Concomitant]
  4. FLEXERIL [Concomitant]
  5. BUMEX [Concomitant]
  6. LOPRESSOR [Concomitant]
  7. SINGULAIR [Concomitant]
  8. AVANDIA [Concomitant]
  9. ZETIA [Concomitant]
  10. LOPID [Concomitant]
  11. SYNTHROID [Concomitant]
  12. LORTAB [Concomitant]

REACTIONS (1)
  - INTERNATIONAL NORMALISED RATIO ABNORMAL [None]
